FAERS Safety Report 16239124 (Version 2)
Quarter: 2019Q2

REPORT INFORMATION
  Report Type: Spontaneous
  Country: PL (occurrence: PL)
  Receive Date: 20190425
  Receipt Date: 20190501
  Transmission Date: 20190711
  Serious: Yes (Other)
  Sender: FDA-Public Use
  Company Number: PL-PFIZER INC-2019170531

PATIENT
  Age: 53 Year
  Sex: Male

DRUGS (1)
  1. GABAPENTIN ACCORD [Suspect]
     Active Substance: GABAPENTIN
     Dosage: UNK

REACTIONS (3)
  - Gamma-glutamyltransferase increased [Unknown]
  - Cholestasis [Unknown]
  - Blood alkaline phosphatase abnormal [Unknown]
